FAERS Safety Report 4377372-X (Version None)
Quarter: 2004Q2

REPORT INFORMATION
  Report Type: 
  Country: None (occurrence: None)
  Receive Date: 20040614
  Receipt Date: 20040614
  Transmission Date: 20050107
  Serious: Yes (Other)
  Sender: FDA-Public Use
  Company Number: None

PATIENT
  Sex: Male
  Weight: 3 kg

DRUGS (4)
  1. ZOSYN [Suspect]
     Indication: SERRATIA BACTERAEMIA
     Dosage: 375 MG Q8H INTRAVENOUS
     Route: 042
     Dates: start: 20040610, end: 20040613
  2. CEFTAZIDIME [Concomitant]
  3. GENTAMICIN [Concomitant]
  4. VANCOMYCIN [Concomitant]

REACTIONS (1)
  - RASH [None]
